FAERS Safety Report 7957055-7 (Version None)
Quarter: 2011Q4

REPORT INFORMATION
  Report Type: 
  Country: None (occurrence: None)
  Receive Date: 20111130
  Receipt Date: 20111123
  Transmission Date: 20120403
  Serious: Yes (Hospitalization, Disabling)
  Sender: FDA-Public Use
  Company Number: GER/GER/11/0022077

PATIENT
  Age: 39 Year
  Sex: Male
  Weight: 71 kg

DRUGS (1)
  1. VENLAFAXINE HCL [Suspect]
     Indication: DEPRESSION
     Dosage: 75 MG, ORAL
     Route: 048
     Dates: start: 20110111, end: 20110206

REACTIONS (2)
  - ENTEROCOLITIS INFECTIOUS [None]
  - PANCREATITIS [None]
